FAERS Safety Report 16720081 (Version 1)
Quarter: 2019Q3

REPORT INFORMATION
  Report Type: Spontaneous
  Country: US (occurrence: US)
  Receive Date: 20190702
  Receipt Date: 20190702
  Transmission Date: 20191005
  Serious: Yes (Hospitalization)
  Sender: FDA-Public Use
  Company Number: None

PATIENT
  Age: 79 Year
  Sex: Male
  Weight: 83.6 kg

DRUGS (2)
  1. EVEROLIMUS (RAD-001) [Suspect]
     Active Substance: EVEROLIMUS
     Dates: end: 20190625
  2. NEXAVAR [Suspect]
     Active Substance: SORAFENIB
     Dates: start: 20190625

REACTIONS (3)
  - Cerebrovascular accident [None]
  - Asthenia [None]
  - Aphasia [None]

NARRATIVE: CASE EVENT DATE: 20190625
